FAERS Safety Report 5105881-4 (Version None)
Quarter: 2006Q3

REPORT INFORMATION
  Report Type: 
  Country: None (occurrence: None)
  Receive Date: 20060915
  Receipt Date: 20060905
  Transmission Date: 20061208
  Serious: Yes (Hospitalization)
  Sender: FDA-Public Use
  Company Number: FR-GLAXOSMITHKLINE-B0438162A

PATIENT
  Age: 82 Year
  Sex: Male
  Weight: 71 kg

DRUGS (6)
  1. AUGMENTIN '125' [Suspect]
     Dosage: 1G THREE TIMES PER DAY
     Route: 042
     Dates: start: 20060223, end: 20060306
  2. NORSET [Suspect]
     Indication: DEPRESSION
     Dosage: 15MG TWICE PER DAY
     Route: 048
     Dates: start: 20050901, end: 20060315
  3. EQUANIL [Suspect]
     Dosage: 400MG THREE TIMES PER DAY
     Route: 048
     Dates: start: 20060303, end: 20060307
  4. PREVISCAN [Suspect]
     Dosage: 20MG PER DAY
     Route: 048
     Dates: start: 20060301, end: 20060315
  5. MOPRAL [Suspect]
     Dosage: 20MG PER DAY
     Route: 048
     Dates: start: 20060301, end: 20060307
  6. PLAVIX [Suspect]
     Dosage: 1UNIT PER DAY
     Route: 048
     Dates: end: 20060325

REACTIONS (3)
  - ANAEMIA [None]
  - LEUKOPENIA [None]
  - NEUTROPENIA [None]
